FAERS Safety Report 18652636 (Version 1)
Quarter: 2020Q4

REPORT INFORMATION
  Report Type: Spontaneous
  Country: US (occurrence: US)
  Receive Date: 20201222
  Receipt Date: 20201222
  Transmission Date: 20210114
  Serious: Yes (Other)
  Sender: FDA-Public Use
  Company Number: US-PURDUE-USA-2020-0180150

PATIENT

DRUGS (1)
  1. OXYCODONE HYDROCHLORIDE (SIMILAR TO NDA 22-272) [Suspect]
     Active Substance: OXYCODONE HYDROCHLORIDE
     Indication: PRODUCT USED FOR UNKNOWN INDICATION
     Route: 048

REACTIONS (8)
  - Drug dependence [Unknown]
  - Sleep disorder [Unknown]
  - Memory impairment [Unknown]
  - Anxiety [Unknown]
  - Tooth loss [Unknown]
  - Disturbance in attention [Unknown]
  - Hypoaesthesia [Unknown]
  - Depression [Unknown]
